FAERS Safety Report 16830106 (Version 2)
Quarter: 2019Q3

REPORT INFORMATION
  Report Type: Spontaneous
  Country: JP (occurrence: JP)
  Receive Date: 20190919
  Receipt Date: 20190930
  Transmission Date: 20191005
  Serious: Yes (Other)
  Sender: FDA-Public Use
  Company Number: JP-BAXTER-2019BAX018161

PATIENT
  Age: 6 Decade
  Sex: Female

DRUGS (2)
  1. HOLOXAN [Suspect]
     Active Substance: IFOSFAMIDE
     Indication: OSTEOSARCOMA
     Dosage: 2 G/M2/DAY
     Route: 042
     Dates: start: 20190910, end: 20190910
  2. UROMITEXAN 400 MG [Suspect]
     Active Substance: MESNA
     Indication: OSTEOSARCOMA
     Route: 042
     Dates: start: 20190910, end: 20190910

REACTIONS (1)
  - Cystitis haemorrhagic [Unknown]

NARRATIVE: CASE EVENT DATE: 20190910
